FAERS Safety Report 7620612-1 (Version None)
Quarter: 2011Q3

REPORT INFORMATION
  Report Type: 
  Country: None (occurrence: None)
  Receive Date: 20110719
  Receipt Date: 20110713
  Transmission Date: 20111222
  Serious: Yes (Other)
  Sender: FDA-Public Use
  Company Number: AU-ROCHE-790253

PATIENT
  Age: 60 Year
  Sex: Female

DRUGS (5)
  1. METOCLOPRAMIDE [Suspect]
     Route: 065
     Dates: end: 20110404
  2. CEFTRIAXONE [Suspect]
     Route: 015
     Dates: start: 20110306, end: 20110404
  3. ONDANSETRON HYDROCHLORIDE AND SODIUM CHLORIDE [Suspect]
     Route: 065
     Dates: end: 20110404
  4. WARFARIN SODIUM [Suspect]
     Route: 065
     Dates: start: 20110308, end: 20110404
  5. ACETAMINOPHEN [Suspect]
     Route: 065
     Dates: end: 20110404

REACTIONS (1)
  - LIVER INJURY [None]
